FAERS Safety Report 8083457-7 (Version None)
Quarter: 2012Q1

REPORT INFORMATION
  Report Type: 
  Country: None (occurrence: None)
  Receive Date: 20120127
  Receipt Date: 20110126
  Transmission Date: 20120608
  Serious: No
  Sender: FDA-Public Use
  Company Number: US-ABBOTT-11P-163-0700767-00

PATIENT
  Age: 17 Year
  Sex: Female

DRUGS (8)
  1. PEPCID [Concomitant]
     Indication: EPIGASTRIC DISCOMFORT
     Route: 048
  2. TRIPHAZAL [Concomitant]
     Indication: CONTRACEPTION
  3. ULTRAM [Concomitant]
     Indication: PRODUCT USED FOR UNKNOWN INDICATION
     Dosage: AT BEDTIME
     Route: 048
  4. FLUOXETINE [Concomitant]
     Indication: DEPRESSION
     Route: 048
  5. IBUPROFEN [Concomitant]
     Indication: PAIN
     Dosage: AS NEEDED
     Route: 048
  6. BETHANECHOL [Concomitant]
     Indication: GASTROINTESTINAL MOTILITY DISORDER
     Route: 048
  7. TRIPHAZAL [Concomitant]
     Indication: OVARIAN CYST
  8. HUMIRA [Suspect]
     Indication: ANKYLOSING SPONDYLITIS
     Dates: start: 20100901

REACTIONS (5)
  - VIRAL INFECTION [None]
  - PAIN [None]
  - OROPHARYNGEAL PAIN [None]
  - SINUSITIS [None]
  - COUGH [None]
